FAERS Safety Report 8065035-9 (Version None)
Quarter: 2012Q1

REPORT INFORMATION
  Report Type: 
  Country: None (occurrence: None)
  Receive Date: 20120124
  Receipt Date: 20120120
  Transmission Date: 20120608
  Serious: No
  Sender: FDA-Public Use
  Company Number: US-PFIZER INC-2012017200

PATIENT
  Sex: Female
  Weight: 79.365 kg

DRUGS (2)
  1. SYNTHROID [Concomitant]
     Indication: HYPOTHYROIDISM
     Dosage: UNK
  2. CHANTIX [Suspect]
     Indication: SMOKING CESSATION THERAPY
     Dosage: 0.5 MG, 1X/DAY
     Route: 048
     Dates: start: 20120117, end: 20120119

REACTIONS (7)
  - INSOMNIA [None]
  - SKIN DISCOMFORT [None]
  - ANXIETY [None]
  - CONSTIPATION [None]
  - NAUSEA [None]
  - FLATULENCE [None]
  - DISORIENTATION [None]
